FAERS Safety Report 23892954 (Version 2)
Quarter: 2025Q3

REPORT INFORMATION
  Report Type: Report from Study
  Country: GB (occurrence: GB)
  Receive Date: 20240524
  Receipt Date: 20250901
  Transmission Date: 20251020
  Serious: Yes (Other)
  Sender: TEVA
  Company Number: GB-002147023-NVSC2023GB138021

PATIENT
  Age: 89 Year
  Sex: Male

DRUGS (2)
  1. GABAPENTIN [Suspect]
     Active Substance: GABAPENTIN
     Indication: Product used for unknown indication
     Route: 065
  2. SANDOSTATIN LAR DEPOT [Suspect]
     Active Substance: OCTREOTIDE ACETATE
     Indication: Product used for unknown indication
     Route: 030

REACTIONS (11)
  - Muscle spasms [Not Recovered/Not Resolved]
  - Vomiting [Unknown]
  - Nausea [Unknown]
  - Arthralgia [Not Recovered/Not Resolved]
  - Hypertension [Unknown]
  - Metastases to spine [Unknown]
  - Adverse reaction [Unknown]
  - Neoplasm progression [Unknown]
  - Dizziness [Unknown]
  - Cerebrospinal fluid leakage [Unknown]
  - Metastases to lung [Unknown]
